FAERS Safety Report 12318828 (Version 1)
Quarter: 2016Q2

REPORT INFORMATION
  Report Type: Spontaneous
  Country: US (occurrence: US)
  Receive Date: 20160429
  Receipt Date: 20160429
  Transmission Date: 20160815
  Serious: No
  Sender: FDA-Public Use
  Company Number: US-BRISTOL-MYERS SQUIBB COMPANY-21663034

PATIENT
  Age: 23 Year
  Sex: Male
  Weight: 74.83 kg

DRUGS (2)
  1. AMINO ACIDS [Concomitant]
     Active Substance: AMINO ACIDS
     Indication: NERVOUS SYSTEM DISORDER
     Route: 065
  2. ABILIFY [Suspect]
     Active Substance: ARIPIPRAZOLE
     Indication: DEPRESSION
     Dosage: DOSE REDUCED:5 MG  INTERR ON 2008  RESTARTED:SEP14-10 MG  ONGOING
     Route: 048
     Dates: start: 200608

REACTIONS (9)
  - Product quality issue [Unknown]
  - Erectile dysfunction [Recovered/Resolved]
  - Dysgraphia [Recovered/Resolved]
  - Corrective lens user [Not Recovered/Not Resolved]
  - Nasopharyngitis [Not Recovered/Not Resolved]
  - Activities of daily living impaired [Recovered/Resolved]
  - Sedation [Not Recovered/Not Resolved]
  - Dyscalculia [Recovered/Resolved]
  - Cognitive disorder [Recovered/Resolved]

NARRATIVE: CASE EVENT DATE: 200608
